FAERS Safety Report 16476001 (Version 2)
Quarter: 2019Q2

REPORT INFORMATION
  Report Type: Spontaneous
  Country: US (occurrence: US)
  Receive Date: 20190625
  Receipt Date: 20190628
  Transmission Date: 20190711
  Serious: No
  Sender: FDA-Public Use
  Company Number: US-TEVA-2019-US-1065870

PATIENT
  Sex: Male

DRUGS (1)
  1. PERMETHRIN ACTAVIS [Suspect]
     Active Substance: PERMETHRIN
     Indication: ACARODERMATITIS
     Route: 065
     Dates: start: 201812

REACTIONS (5)
  - Pain [Unknown]
  - Pigmentation disorder [Unknown]
  - Pruritus [Unknown]
  - Treatment failure [Unknown]
  - Localised infection [Unknown]
